FAERS Safety Report 8814789 (Version 1)
Quarter: 2012Q4

REPORT INFORMATION
  Report Type: Spontaneous
  Country: GB (occurrence: None)
  Receive Date: 20120926
  Receipt Date: 20120926
  Transmission Date: 20130627
  Serious: Yes (Death)
  Sender: FDA-Public Use
  Company Number: 2012SUN00050

PATIENT
  Age: 80 Year
  Sex: Female
  Weight: 130 kg

DRUGS (10)
  1. WARFARIN [Suspect]
     Indication: DRUG USE FOR UNKNOWN INDICATION
     Dates: start: 20110721
  2. CLINDAMYCIN [Suspect]
     Indication: CELLULITIS
     Route: 048
     Dates: start: 20111017, end: 20111025
  3. ADALAT LA (NIFEDIPINE) [Concomitant]
  4. ATENOLOL (ATENOLOL) [Concomitant]
  5. BENDROFLUMETHIAZIDE (BENDROFLUMETHIAZIDE) [Concomitant]
  6. CAPTOPRIL (CAPTOPRIL) [Concomitant]
  7. CODEINE (CODEINE) [Concomitant]
  8. DOXAZOSIN (DOXAZOSIN) [Concomitant]
  9. PARACETAMOL (PARACETAMOL) [Concomitant]
  10. PHENOXYMETHYLPENICILLIN (PHENOXYMETHYLPENICILLIN) [Concomitant]

REACTIONS (3)
  - Drug interaction [None]
  - Coagulopathy [None]
  - Retroperitoneal haemorrhage [None]
